FAERS Safety Report 6761390-8 (Version None)
Quarter: 2010Q2

REPORT INFORMATION
  Report Type: 
  Country: None (occurrence: None)
  Receive Date: 20100608
  Receipt Date: 20100527
  Transmission Date: 20101027
  Serious: Yes (Death, Hospitalization)
  Sender: FDA-Public Use
  Company Number: JP-AMGEN-US409608

PATIENT
  Sex: Female

DRUGS (8)
  1. ENBREL [Suspect]
     Indication: RHEUMATOID ARTHRITIS
     Dosage: LYOPHILIZED, 25MG TWICE WEEKLY
     Route: 058
     Dates: start: 20071010
  2. ENBREL [Suspect]
     Dosage: PREFILLED SYRINGE, 50 MG/WEEK
     Route: 058
     Dates: end: 20090301
  3. ENBREL [Suspect]
     Route: 058
     Dates: start: 20090301, end: 20100312
  4. ISONIAZID [Concomitant]
     Dosage: 300 MG, FREQUENCY UNSPECIFIED
     Dates: start: 20080801, end: 20090501
  5. OMEPRAL [Concomitant]
     Dosage: UNKNOWN
     Route: 048
  6. FOLIAMIN [Concomitant]
     Dosage: UNKNOWN
     Route: 048
  7. RHEUMATREX [Concomitant]
     Route: 048
     Dates: start: 20071010, end: 20090312
  8. PREDONINE [Concomitant]
     Dosage: UNKNOWN
     Route: 048

REACTIONS (4)
  - PNEUMONIA [None]
  - RESPIRATORY FAILURE [None]
  - SEPSIS [None]
  - TUBERCULIN TEST POSITIVE [None]
